FAERS Safety Report 5551515-4 (Version None)
Quarter: 2007Q4

REPORT INFORMATION
  Report Type: 
  Country: None (occurrence: None)
  Receive Date: 20071128
  Receipt Date: 20070723
  Transmission Date: 20080405
  Serious: Yes (Other)
  Sender: FDA-Public Use
  Company Number: 2007061794

PATIENT
  Age: 52 Year
  Sex: Male
  Weight: 81.6475 kg

DRUGS (4)
  1. LIPITOR [Suspect]
     Indication: HYPERCHOLESTEROLAEMIA
     Dosage: 20 MG (EVERY DAY), ORAL
     Route: 048
     Dates: start: 19990101
  2. PROVIGIL [Suspect]
     Indication: FATIGUE
     Dosage: 200 MG (EVERY DAY), ORAL
     Route: 048
     Dates: start: 20050101
  3. SYNTHROID [Suspect]
     Indication: THYROID DISORDER
     Dosage: 0.137 MG (EVERY DAY), ORAL
     Route: 048
     Dates: start: 19840701
  4. REBIF [Concomitant]

REACTIONS (4)
  - CARDIAC DISORDER [None]
  - DRUG INTERACTION [None]
  - HYPERTENSION [None]
  - LIMB DISCOMFORT [None]
